FAERS Safety Report 6275739-6 (Version None)
Quarter: 2009Q3

REPORT INFORMATION
  Report Type: 
  Country: None (occurrence: None)
  Receive Date: 20090721
  Receipt Date: 20090709
  Transmission Date: 20100115
  Serious: Yes (Other)
  Sender: FDA-Public Use
  Company Number: PHHY2009PT21803

PATIENT
  Sex: Female

DRUGS (15)
  1. ACLASTA [Suspect]
     Indication: OSTEOPOROSIS
     Dosage: UNK
     Route: 042
     Dates: start: 20090518
  2. COAPROVEL [Concomitant]
     Indication: HYPERTENSION
     Dosage: 150+2.5 MG
     Dates: end: 20090518
  3. COVERSYL [Concomitant]
     Indication: HYPERTENSION
     Dosage: UNK
  4. CAPTOPRIL [Concomitant]
     Dosage: 50 MG DAILY
  5. BENDALINA [Concomitant]
     Dosage: 5 MG/ML, UNK
     Route: 047
  6. DICLOFENAC [Concomitant]
     Dosage: UNK
     Route: 061
  7. HERBESSER [Concomitant]
     Dosage: 60 MG DAILY
     Dates: end: 20090517
  8. HERBESSER [Concomitant]
     Dosage: 30 MG
     Dates: start: 20090518
  9. DOMPERIDONE [Concomitant]
     Dosage: 10 MG
  10. PARIET [Concomitant]
     Dosage: 20 MG DAILY AT NIGHT
  11. PRAVASTATIN [Concomitant]
     Dosage: 20 MG AT DINNER
  12. DIAZEPAM [Concomitant]
     Dosage: 10 MG
     Dates: end: 20090518
  13. DIAZEPAM [Concomitant]
     Dosage: 5 MG
     Dates: start: 20090518
  14. TRITICUM [Concomitant]
     Dosage: 150 MG, UNK
  15. TRITICUM [Concomitant]
     Dosage: 50 MG

REACTIONS (7)
  - ASTHENIA [None]
  - DECREASED APPETITE [None]
  - DIZZINESS [None]
  - FEELING COLD [None]
  - HYPOTENSION [None]
  - SYNCOPE [None]
  - TREMOR [None]
